FAERS Safety Report 24584201 (Version 1)
Quarter: 2024Q4

REPORT INFORMATION
  Report Type: Spontaneous
  Country: US (occurrence: None)
  Receive Date: 20241105
  Receipt Date: 20241105
  Transmission Date: 20250115
  Serious: Yes (Death)
  Sender: Public
  Company Number: None

PATIENT
  Age: 11 Day
  Sex: Male

DRUGS (1)
  1. BEYFORTUS [Suspect]
     Active Substance: NIRSEVIMAB-ALIP
     Indication: Normal newborn

REACTIONS (4)
  - Hepatic failure [None]
  - Herpes simplex sepsis [None]
  - Sepsis [None]
  - Escherichia bacteraemia [None]

NARRATIVE: CASE EVENT DATE: 20241031
